FAERS Safety Report 8043153-9 (Version None)
Quarter: 2011Q4

REPORT INFORMATION
  Report Type: 
  Country: None (occurrence: None)
  Receive Date: 20111202
  Receipt Date: 20101022
  Transmission Date: 20120403
  Serious: Yes (Hospitalization)
  Sender: FDA-Public Use
  Company Number: 2010SP056683

PATIENT
  Age: 17 Year
  Sex: Female

DRUGS (2)
  1. NUVARING [Suspect]
     Indication: CONTRACEPTION
     Dosage: 1 DF; ;VAG
     Route: 067
     Dates: start: 20101018, end: 20101020
  2. PHENTERMINE [Concomitant]

REACTIONS (3)
  - AGITATION [None]
  - ANGER [None]
  - BLOOD PRESSURE INCREASED [None]
